FAERS Safety Report 25897474 (Version 2)
Quarter: 2025Q4

REPORT INFORMATION
  Report Type: Spontaneous
  Country: EU (occurrence: None)
  Receive Date: 20251008
  Receipt Date: 20251031
  Transmission Date: 20260118
  Serious: Yes (Hospitalization)
  Sender: UCB
  Company Number: EU-UCBSA-2025063023

PATIENT

DRUGS (1)
  1. BIMZELX [Suspect]
     Active Substance: BIMEKIZUMAB-BKZX
     Indication: Psoriasis
     Dosage: 320 MILLIGRAM

REACTIONS (3)
  - Supraventricular extrasystoles [Recovered/Resolved]
  - Dyspnoea [Recovered/Resolved]
  - Heart rate abnormal [Recovered/Resolved]
